FAERS Safety Report 5654965-0 (Version None)
Quarter: 2008Q1

REPORT INFORMATION
  Report Type: 
  Country: None (occurrence: None)
  Receive Date: 20080307
  Receipt Date: 20070927
  Transmission Date: 20080703
  Serious: Yes (Other)
  Sender: FDA-Public Use
  Company Number: A0684740A

PATIENT
  Age: 61 Year
  Sex: Female

DRUGS (10)
  1. REQUIP [Suspect]
     Indication: PARKINSON'S DISEASE
     Dosage: .5MG PER DAY
     Route: 048
     Dates: start: 20070801
  2. TRAMADOL HCL [Concomitant]
  3. BACLOFEN [Concomitant]
  4. CARBIDOPA AND LEVODOPA [Concomitant]
  5. TRAZODONE HCL [Concomitant]
  6. BONIVA [Concomitant]
  7. TIGAN [Concomitant]
  8. VITAMINS [Concomitant]
  9. GLUCOSAMINE + CHONDROITIN [Concomitant]
  10. ALOE VERA [Concomitant]

REACTIONS (2)
  - HALLUCINATION, VISUAL [None]
  - NIGHTMARE [None]
